FAERS Safety Report 6384041-3 (Version None)
Quarter: 2009Q3

REPORT INFORMATION
  Report Type: 
  Country: None (occurrence: None)
  Receive Date: 20090928
  Receipt Date: 20090922
  Transmission Date: 20100115
  Serious: Yes (Other)
  Sender: FDA-Public Use
  Company Number: 2009SP023676

PATIENT
  Age: 30 Year
  Sex: Female

DRUGS (2)
  1. MIRTAZAPINE [Suspect]
     Indication: DEPRESSION
     Dosage: 15 MG QD; 30 MG;QD
     Dates: start: 20090720, end: 20090813
  2. MIRTAZAPINE [Suspect]
     Indication: DEPRESSION
     Dosage: 15 MG QD; 30 MG;QD
     Dates: start: 20090814, end: 20090904

REACTIONS (1)
  - BLOOD ALKALINE PHOSPHATASE INCREASED [None]
